FAERS Safety Report 5129424-4 (Version None)
Quarter: 2006Q4

REPORT INFORMATION
  Report Type: 
  Country: None (occurrence: None)
  Receive Date: 20061012
  Receipt Date: 20061004
  Transmission Date: 20070319
  Serious: Yes (Hospitalization)
  Sender: FDA-Public Use
  Company Number: 163-20785-06070092

PATIENT
  Age: 50 Year
  Sex: Male

DRUGS (6)
  1. THALOMID [Suspect]
     Indication: GAMMOPATHY
     Dosage: SEE IMAGE
     Route: 048
     Dates: start: 20040706, end: 20060822
  2. THALOMID [Suspect]
     Indication: GAMMOPATHY
     Dosage: SEE IMAGE
     Route: 048
     Dates: start: 20040706
  3. THALOMID [Suspect]
     Indication: GAMMOPATHY
     Dosage: SEE IMAGE
     Route: 048
     Dates: start: 20050412
  4. PREDNISONE TAB [Concomitant]
  5. ARANESP [Concomitant]
  6. NEURONTIN [Concomitant]

REACTIONS (5)
  - ABSCESS SOFT TISSUE [None]
  - DIALYSIS [None]
  - HIP ARTHROPLASTY [None]
  - POSTOPERATIVE INFECTION [None]
  - PYREXIA [None]
